FAERS Safety Report 20087868 (Version 1)
Quarter: 2021Q4

REPORT INFORMATION
  Report Type: Spontaneous
  Country: JP (occurrence: JP)
  Receive Date: 20211118
  Receipt Date: 20211118
  Transmission Date: 20220304
  Serious: Yes (Other)
  Sender: FDA-Public Use
  Company Number: JP-TEVA-2021-JP-1978870

PATIENT
  Age: 4 Decade
  Sex: Male

DRUGS (10)
  1. IRINOTECAN [Suspect]
     Active Substance: IRINOTECAN
     Indication: Colorectal cancer
     Route: 065
  2. OXALIPLATIN [Suspect]
     Active Substance: OXALIPLATIN
     Indication: Colorectal cancer
     Dosage: 85MG/M2 ON DAY 1
     Route: 065
  3. GIMERACIL\OTERACIL\TEGAFUR [Suspect]
     Active Substance: GIMERACIL\OTERACIL\TEGAFUR
     Indication: Colorectal cancer
     Dosage: 120MG
     Route: 065
  4. BEVACIZUMAB [Suspect]
     Active Substance: BEVACIZUMAB
     Indication: Colorectal cancer
     Route: 065
  5. FLUOROURACIL [Suspect]
     Active Substance: FLUOROURACIL
     Indication: Colorectal cancer
     Dosage: 400MG/M2, 7 CYCLES ON DAY 1 EVERY 2 WEEKS
     Route: 065
  6. FLUOROURACIL [Suspect]
     Active Substance: FLUOROURACIL
     Dosage: 2400MG/M2 7 CYCLES ON DAY 1 EVERY 2 WEEKS
     Route: 065
  7. FLUOROURACIL [Suspect]
     Active Substance: FLUOROURACIL
     Dosage: 400MG/M2 7 CYCLES, FOR 46 HOURS FROM DAY 1
     Route: 065
  8. FLUOROURACIL [Suspect]
     Active Substance: FLUOROURACIL
     Dosage: 2400MG/M 7 CYCLES, FOR 46 HOURS FROM DAY 1
     Route: 065
  9. LEVOLEUCOVORIN CALCIUM [Concomitant]
     Active Substance: LEVOLEUCOVORIN CALCIUM
     Indication: Chemotherapy side effect prophylaxis
     Dosage: 200MG/M2 ON DAY 1, EVERY 2 WEEKS
     Route: 065
  10. LEVOLEUCOVORIN CALCIUM [Concomitant]
     Active Substance: LEVOLEUCOVORIN CALCIUM
     Dosage: 200MG/M2 ON DAY 1, EVERY 2 WEEKS
     Route: 065

REACTIONS (4)
  - Hypertriglyceridaemia [Recovered/Resolved]
  - Palmar-plantar erythrodysaesthesia syndrome [Unknown]
  - Diarrhoea [Unknown]
  - Nausea [Unknown]
